FAERS Safety Report 8241243-9 (Version None)
Quarter: 2012Q1

REPORT INFORMATION
  Report Type: 
  Country: None (occurrence: None)
  Receive Date: 20120328
  Receipt Date: 20120327
  Transmission Date: 20120608
  Serious: No
  Sender: FDA-Public Use
  Company Number: US-PFIZER INC-2012078674

PATIENT
  Sex: Male

DRUGS (3)
  1. SYNTHROID [Concomitant]
     Dosage: UNK
  2. PROPECIA [Concomitant]
     Dosage: UNK
  3. CHANTIX [Suspect]
     Indication: SMOKING CESSATION THERAPY
     Dosage: UNK
     Route: 048
     Dates: start: 20120301

REACTIONS (5)
  - AGITATION [None]
  - FEELING ABNORMAL [None]
  - NAUSEA [None]
  - FRUSTRATION [None]
  - ABDOMINAL DISCOMFORT [None]
